FAERS Safety Report 20460601 (Version 3)
Quarter: 2022Q1

REPORT INFORMATION
  Report Type: Report from Study
  Country: GR (occurrence: GR)
  Receive Date: 20220211
  Receipt Date: 20220224
  Transmission Date: 20220424
  Serious: Yes (Death, Hospitalization)
  Sender: FDA-Public Use
  Company Number: GR-ABBVIE-22K-066-4271984-00

PATIENT
  Sex: Male
  Weight: 75 kg

DRUGS (11)
  1. CARBIDOPA\LEVODOPA [Suspect]
     Active Substance: CARBIDOPA\LEVODOPA
     Indication: Parkinson^s disease
     Dosage: MORNING DOSE: 8 ML; CONTINUOUS RATE: 5.3 ML/H; EXTRA DOSE: 1.5 ML (24HOURS ADMINISTRATION)
     Route: 050
     Dates: start: 20191030, end: 20220209
  2. CARBIDOPA\LEVODOPA [Suspect]
     Active Substance: CARBIDOPA\LEVODOPA
  3. BISOPROLOL FUMARATE [Concomitant]
     Active Substance: BISOPROLOL FUMARATE
     Indication: Product used for unknown indication
     Dosage: 1/4 DOSE
     Route: 048
  4. RACTILEN [Concomitant]
     Indication: Product used for unknown indication
     Route: 048
  5. TRAZODONE HYDROCHLORIDE [Concomitant]
     Active Substance: TRAZODONE HYDROCHLORIDE
     Indication: Product used for unknown indication
     Route: 048
  6. MELATONIN [Concomitant]
     Active Substance: MELATONIN
     Indication: Product used for unknown indication
     Route: 048
  7. CLONAZEPAM [Concomitant]
     Active Substance: CLONAZEPAM
     Indication: Product used for unknown indication
     Route: 048
  8. COVID-19 VACCINE [Concomitant]
     Indication: COVID-19 immunisation
     Dosage: 1ST DOSE
     Route: 030
  9. COVID-19 VACCINE [Concomitant]
     Dosage: 2ND DOSE
     Route: 030
  10. COVID-19 VACCINE [Concomitant]
     Dosage: 3RD DOSE
     Route: 030
  11. BISOPROLOL FUMARATE [Concomitant]
     Active Substance: BISOPROLOL FUMARATE
     Indication: Product used for unknown indication
     Dosage: 0.25 OF UNKNOWN DOSE

REACTIONS (1)
  - COVID-19 [Fatal]
